FAERS Safety Report 7498829-9 (Version None)
Quarter: 2011Q2

REPORT INFORMATION
  Report Type: 
  Country: None (occurrence: None)
  Receive Date: 20110516
  Receipt Date: 20110505
  Transmission Date: 20111010
  Serious: Yes (Hospitalization, Other)
  Sender: FDA-Public Use
  Company Number: ACO_23950_2011

PATIENT
  Age: 75 Year
  Sex: Male
  Weight: 73.5 kg

DRUGS (8)
  1. VITAMIN D [Concomitant]
  2. LOSARTAN POTASSIUM [Concomitant]
  3. MSM 1000 (METHYLSULFONYLMETHANE) [Concomitant]
  4. AMPYRA [Suspect]
     Indication: MULTIPLE SCLEROSIS
     Dosage: 10 MG, BID, ORAL
     Route: 048
     Dates: start: 20110301
  5. MULTIVITAMINS (ASCORBIC ACID ERGOALCIFEROL, FOLIC ACID, NICOTINAMIDE, [Concomitant]
  6. VITAMIN B 12 (VITAMIN B NOS) [Concomitant]
  7. OMEGA-3-ACID ETHYL ESTERS (LOVAZA) [Concomitant]
  8. REQUIP [Concomitant]

REACTIONS (8)
  - DIZZINESS POSTURAL [None]
  - HEART RATE DECREASED [None]
  - ARTHRALGIA [None]
  - SYNCOPE [None]
  - CONSTIPATION [None]
  - PAIN IN EXTREMITY [None]
  - FALL [None]
  - BACK PAIN [None]
